FAERS Safety Report 8043420-9 (Version None)
Quarter: 2012Q1

REPORT INFORMATION
  Report Type: 
  Country: None (occurrence: None)
  Receive Date: 20120112
  Receipt Date: 20120110
  Transmission Date: 20120608
  Serious: Yes (Hospitalization)
  Sender: FDA-Public Use
  Company Number: GXKR2012DE000519

PATIENT

DRUGS (1)
  1. METHYLPREDNISOLONE [Suspect]
     Indication: MULTIPLE SCLEROSIS RELAPSE
     Route: 042
     Dates: start: 20110713, end: 20110713

REACTIONS (4)
  - ATAXIA [None]
  - DIZZINESS [None]
  - NYSTAGMUS [None]
  - CEREBELLAR INFARCTION [None]
